FAERS Safety Report 8831552 (Version 1)
Quarter: 2012Q4

REPORT INFORMATION
  Report Type: 
  Country: ES (occurrence: ES)
  Receive Date: 20121009
  Receipt Date: 20121009
  Transmission Date: 20130627
  Serious: Yes (Hospitalization)
  Sender: FDA-Public Use
  Company Number: ES-ROCHE-1138608

PATIENT
  Age: 21 Year
  Sex: Male

DRUGS (6)
  1. KYTRIL [Suspect]
     Indication: VOMITING
     Dosage: 1mg/ml
     Route: 042
     Dates: start: 20120113, end: 20120113
  2. EMEND [Suspect]
     Indication: VOMITING
     Route: 042
     Dates: start: 20120113, end: 20120113
  3. METHOTREXATE [Suspect]
     Indication: BONE SARCOMA
     Route: 042
     Dates: start: 20120113, end: 20120113
  4. DEXAMETHASONE [Suspect]
     Indication: PRODUCT USED FOR UNKNOWN INDICATION
     Route: 042
     Dates: start: 20120113, end: 20120113
  5. ADOLONTA [Concomitant]
     Indication: PAIN
     Route: 065
     Dates: start: 20120113
  6. PRIMPERAN (SPAIN) [Concomitant]
     Indication: VOMITING
     Route: 065
     Dates: start: 20120113

REACTIONS (1)
  - Hepatitis [Recovered/Resolved]
